FAERS Safety Report 11068586 (Version 1)
Quarter: 2015Q2

REPORT INFORMATION
  Report Type: Spontaneous
  Country: US (occurrence: US)
  Receive Date: 20150427
  Receipt Date: 20150427
  Transmission Date: 20150821
  Serious: Yes (Hospitalization)
  Sender: FDA-Public Use
  Company Number: US-TEVA-556863USA

PATIENT
  Sex: Male

DRUGS (1)
  1. DOXEPIN [Suspect]
     Active Substance: DOXEPIN
     Route: 062

REACTIONS (4)
  - Somnolence [Unknown]
  - Pelvic fracture [Unknown]
  - Fall [Unknown]
  - Balance disorder [Unknown]
